FAERS Safety Report 24307425 (Version 4)
Quarter: 2024Q4

REPORT INFORMATION
  Report Type: Spontaneous
  Country: MX (occurrence: MX)
  Receive Date: 20240911
  Receipt Date: 20241118
  Transmission Date: 20250114
  Serious: No
  Sender: PFIZER
  Company Number: MX-PFIZER INC-PV202400118106

PATIENT
  Sex: Female

DRUGS (1)
  1. GENOTROPIN [Suspect]
     Active Substance: SOMATROPIN
     Dosage: 0.45 MG, 1X/DAY
     Route: 058
     Dates: start: 20240709

REACTIONS (3)
  - Device defective [Unknown]
  - Device leakage [Unknown]
  - Drug dose omission by device [Unknown]

NARRATIVE: CASE EVENT DATE: 20240905
